FAERS Safety Report 9387584 (Version 1)
Quarter: 2013Q2

REPORT INFORMATION
  Report Type: Spontaneous
  Country: CA (occurrence: None)
  Receive Date: 20130621
  Receipt Date: 20130621
  Transmission Date: 20140414
  Serious: Yes (Life-Threatening, Other)
  Sender: FDA-Public Use
  Company Number: 2013036538

PATIENT
  Age: 23 Year
  Sex: Female

DRUGS (1)
  1. HIZENTRA [Suspect]
     Dosage: WEEK
     Route: 058

REACTIONS (5)
  - Meningitis aseptic [None]
  - Musculoskeletal stiffness [None]
  - Spinal pain [None]
  - Migraine [None]
  - Eye pain [None]
